FAERS Safety Report 22356512 (Version 2)
Quarter: 2023Q2

REPORT INFORMATION
  Report Type: Spontaneous
  Country: US (occurrence: US)
  Receive Date: 20230523
  Receipt Date: 20230526
  Transmission Date: 20230722
  Serious: Yes (Other)
  Sender: FDA-Public Use
  Company Number: US-ORGANON-O2305USA001813

PATIENT
  Sex: Male

DRUGS (3)
  1. COZAAR [Suspect]
     Active Substance: LOSARTAN POTASSIUM
     Indication: Hypertension
     Dosage: UNK
     Route: 048
  2. BISOPROLOL FUMARATE [Concomitant]
     Active Substance: BISOPROLOL FUMARATE
     Dosage: UNK
  3. TYLENOL [Concomitant]
     Active Substance: ACETAMINOPHEN
     Dosage: UNK

REACTIONS (21)
  - Atrial fibrillation [Unknown]
  - Vocal cord paralysis [Unknown]
  - Myocardial infarction [Unknown]
  - Lung neoplasm malignant [Unknown]
  - Bradycardia [Unknown]
  - Abdominal discomfort [Unknown]
  - Peripheral swelling [Unknown]
  - Nasal congestion [Unknown]
  - Blood pressure increased [Unknown]
  - Emphysema [Unknown]
  - Cholelithiasis [Unknown]
  - Sinus disorder [Unknown]
  - Pancreatic cyst [Unknown]
  - Renal cyst [Unknown]
  - Asthma [Unknown]
  - Prostatic disorder [Unknown]
  - Chest discomfort [Unknown]
  - Dyspnoea [Unknown]
  - Extrasystoles [Unknown]
  - Tachycardia [Unknown]
  - Asthenia [Unknown]

NARRATIVE: CASE EVENT DATE: 20230511
